FAERS Safety Report 4412905-6 (Version None)
Quarter: 2004Q3

REPORT INFORMATION
  Report Type: 
  Country: None (occurrence: None)
  Receive Date: 20040727
  Receipt Date: 20040712
  Transmission Date: 20050211
  Serious: Yes (Other)
  Sender: FDA-Public Use
  Company Number: 2004-07-0662

PATIENT
  Sex: Female

DRUGS (1)
  1. CLARITIN [Suspect]
     Dosage: ORAL
     Route: 048

REACTIONS (2)
  - BLOOD URINE [None]
  - KIDNEY INFECTION [None]
